FAERS Safety Report 8389606 (Version 3)
Quarter: 2015Q1

REPORT INFORMATION
  Report Type: Report from Study
  Country: US (occurrence: US)
  Receive Date: 20120203
  Receipt Date: 20150303
  Transmission Date: 20150721
  Serious: Yes (Death, Hospitalization)
  Sender: FDA-Public Use
  Company Number: US-ROCHE-1036152

PATIENT
  Age: 55 Year
  Sex: Female

DRUGS (26)
  1. AVASTIN [Suspect]
     Active Substance: BEVACIZUMAB
     Route: 042
  2. ABRAXANE [Concomitant]
     Active Substance: PACLITAXEL
     Route: 042
  3. FLORINEF ACETATE [Concomitant]
     Active Substance: FLUDROCORTISONE ACETATE
     Route: 065
  4. TAXOL [Concomitant]
     Active Substance: PACLITAXEL
     Route: 065
  5. ABRAXANE [Concomitant]
     Active Substance: PACLITAXEL
     Route: 042
  6. REMERON [Concomitant]
     Active Substance: MIRTAZAPINE
  7. ARANESP [Concomitant]
     Active Substance: DARBEPOETIN ALFA
     Route: 058
  8. PROTONIX (UNITED STATES) [Concomitant]
  9. AVASTIN [Suspect]
     Active Substance: BEVACIZUMAB
     Route: 042
  10. AVASTIN [Suspect]
     Active Substance: BEVACIZUMAB
     Route: 042
  11. ABRAXANE [Concomitant]
     Active Substance: PACLITAXEL
     Route: 042
  12. ABRAXANE [Concomitant]
     Active Substance: PACLITAXEL
     Route: 042
  13. AUGMENTIN [Concomitant]
     Active Substance: AMOXICILLIN\CLAVULANATE POTASSIUM
     Route: 065
  14. AVASTIN [Suspect]
     Active Substance: BEVACIZUMAB
     Route: 042
  15. DURAGESIC [Concomitant]
     Active Substance: FENTANYL
  16. ARANESP [Concomitant]
     Active Substance: DARBEPOETIN ALFA
     Route: 058
  17. KEFLEX [Concomitant]
     Active Substance: CEPHALEXIN
     Route: 048
  18. IBUPROFEN. [Concomitant]
     Active Substance: IBUPROFEN
     Route: 065
  19. CARAFATE [Concomitant]
     Active Substance: SUCRALFATE
     Route: 048
  20. VICOPROFEN [Concomitant]
     Active Substance: HYDROCODONE BITARTRATE\IBUPROFEN
  21. NEULASTA [Concomitant]
     Active Substance: PEGFILGRASTIM
     Route: 058
  22. KYTRIL [Concomitant]
     Active Substance: GRANISETRON HYDROCHLORIDE
     Route: 042
  23. AVASTIN [Suspect]
     Active Substance: BEVACIZUMAB
     Indication: BREAST CANCER FEMALE
     Route: 042
     Dates: start: 20060418
  24. AVASTIN [Suspect]
     Active Substance: BEVACIZUMAB
     Route: 042
  25. LORAZEPAM. [Concomitant]
     Active Substance: LORAZEPAM
     Route: 065
  26. KYTRIL [Concomitant]
     Active Substance: GRANISETRON HYDROCHLORIDE
     Route: 042

REACTIONS (24)
  - Dehydration [Recovered/Resolved]
  - Nausea [Recovered/Resolved]
  - Paraesthesia [Unknown]
  - Fatigue [Unknown]
  - Urine output decreased [Unknown]
  - Thirst [Unknown]
  - Depression [Unknown]
  - Sleep disorder [Unknown]
  - Acute prerenal failure [Recovered/Resolved]
  - Hyponatraemia [Recovered/Resolved]
  - Hypoaesthesia [Unknown]
  - Decreased appetite [Unknown]
  - Vomiting [Recovered/Resolved]
  - Abdominal pain [Recovering/Resolving]
  - Death [Fatal]
  - Blood creatinine increased [Unknown]
  - Dyspepsia [Unknown]
  - Fear [Unknown]
  - Asthenia [Unknown]
  - Off label use [Unknown]
  - Ascites [Unknown]
  - Hyperkalaemia [Recovered/Resolved]
  - Cellulitis [Unknown]
  - Cardiac murmur [Unknown]

NARRATIVE: CASE EVENT DATE: 20060831
